FAERS Safety Report 21844602 (Version 1)
Quarter: 2023Q1

REPORT INFORMATION
  Report Type: Spontaneous
  Country: LU (occurrence: LU)
  Receive Date: 20230110
  Receipt Date: 20230110
  Transmission Date: 20230418
  Serious: Yes (Death)
  Sender: FDA-Public Use
  Company Number: None

PATIENT
  Age: 42 Year
  Sex: Female
  Weight: 57 kg

DRUGS (25)
  1. TRAMADOL [Suspect]
     Active Substance: TRAMADOL
     Indication: Pain
     Dosage: 1 DOSAGE FORM, QD, IN THE MORNING
     Route: 048
     Dates: start: 20221028
  2. TRAMADOL [Suspect]
     Active Substance: TRAMADOL
     Indication: Pain
     Dosage: 1 DOSAGE FORM, QD, IN THE EVENING
     Route: 048
     Dates: start: 20221024
  3. RISPERDAL [Interacting]
     Active Substance: RISPERIDONE
     Indication: Behaviour disorder
     Dosage: 2 MILLIGRAM, QD, IN THE EVENING
     Route: 048
     Dates: start: 20190930
  4. RISPERDAL [Interacting]
     Active Substance: RISPERIDONE
     Dosage: 3 MILLIGRAM, QD, IN THE MORNING
     Route: 048
     Dates: start: 20170807
  5. PFIZER-BIONTECH COVID-19 VACCINE [Suspect]
     Active Substance: TOZINAMERAN
     Indication: COVID-19 immunisation
     Dosage: 1 DOSAGE FORM, R2
     Route: 030
     Dates: start: 20221102, end: 20221102
  6. INVESTIGATIONAL PRODUCT [Suspect]
     Active Substance: INVESTIGATIONAL PRODUCT
     Indication: Prophylaxis
     Dosage: 1 DOSAGE FORM, QD
     Route: 048
     Dates: start: 20221101
  7. FERROUS GLUCONATE [Suspect]
     Active Substance: FERROUS GLUCONATE
     Indication: Anaemia
     Dosage: 1 DOSAGE FORM, QD,IN THE EVENING
     Route: 048
     Dates: start: 20221028
  8. ZARONTIN [Concomitant]
     Active Substance: ETHOSUXIMIDE
     Indication: Epilepsy
     Dosage: 30 ML, QD, 25MG/ML, 10 ML IN THE MOR,NOON, BEDTIME
     Route: 048
     Dates: start: 20051107
  9. Calperos [Concomitant]
     Indication: Hypocalcaemia
     Dosage: 2 DOSAGE FORM, QD,2 DOSE IN THE MORNING
     Route: 048
     Dates: start: 20170721
  10. Cranberola [Concomitant]
     Indication: Urinary tract infection
     Dosage: 1 DOSAGE FORM, Q8H
     Route: 048
     Dates: start: 20200928
  11. PIPAMPERONE [Concomitant]
     Active Substance: PIPAMPERONE
     Indication: Behaviour disorder
     Dosage: 5 DF, QD,1 DOSE IN MOR, 2 DOSES AT NOON ANDBEDTIME
     Route: 048
     Dates: start: 20130704
  12. TRAZODONE [Concomitant]
     Active Substance: TRAZODONE HYDROCHLORIDE
     Indication: Agitation
     Dosage: 3 DF, QD0.5 DOSE MOR,NOON 1 IN EVENING AND BEDTIME
     Route: 048
     Dates: start: 20050712
  13. ETILEFRINE HYDROCHLORIDE [Concomitant]
     Active Substance: ETILEFRINE HYDROCHLORIDE
     Indication: Hypotension
     Dosage: 2 DOSAGE FORM, Q8H
     Route: 048
     Dates: start: 20050321
  14. MELPERONE [Concomitant]
     Active Substance: MELPERONE
     Indication: Behaviour disorder
     Dosage: 1 DOSAGE FORM, Q8H
     Route: 048
     Dates: start: 20190829
  15. EUTHYROX [Concomitant]
     Active Substance: LEVOTHYROXINE SODIUM
     Indication: Hypothyroidism
     Dosage: 1 DOSAGE FORM, QD, IN THE MORNING
     Route: 048
     Dates: start: 20050321
  16. NOVALGIN (METAMIZOLE SODIUM) [Concomitant]
     Active Substance: METAMIZOLE SODIUM
     Indication: Pain
     Dosage: 30 GTT DROPS, Q6H
     Route: 048
     Dates: start: 20221014
  17. BRIVIACT [Concomitant]
     Active Substance: BRIVARACETAM
     Indication: Epilepsy
     Dosage: 1 DOSAGE FORM, BID
     Route: 048
     Dates: start: 20220205
  18. LORAZEPAM [Concomitant]
     Active Substance: LORAZEPAM
     Indication: Agitation
     Dosage: 2 DOSAGE FORM, QD, 1 DOSE AT NOON AND EVENING
     Route: 048
     Dates: start: 20190826
  19. TOPAMAX [Concomitant]
     Active Substance: TOPIRAMATE
     Indication: Epilepsy
     Dosage: 2 DOSAGE FORM, QD,2 DOSES IN THE EVENING
     Route: 048
     Dates: start: 20090317
  20. CHOLECALCIFEROL [Concomitant]
     Active Substance: CHOLECALCIFEROL
     Indication: Vitamin D deficiency
     Dosage: 1 DOSAGE FORM, QW
     Route: 048
     Dates: start: 20090806
  21. ASPIRIN [Concomitant]
     Active Substance: ASPIRIN
     Indication: Stent placement
     Dosage: 1 DOSAGE FORM, QD, AT NOON
     Route: 048
     Dates: start: 20050322
  22. ESOMEPRAZOLE [Concomitant]
     Active Substance: ESOMEPRAZOLE
     Indication: Regurgitation
     Dosage: 1 DOSAGE FORM, QD
     Route: 048
     Dates: start: 20220802
  23. MOVICOL [Concomitant]
     Active Substance: POLYETHYLENE GLYCOL 3350\POTASSIUM CHLORIDE\SODIUM BICARBONATE\SODIUM CHLORIDE
     Indication: Constipation
     Dosage: 3 DOSAGE FORM, QD 2 DOSE IN THE MORNING, 1 AT NOON
     Route: 048
     Dates: start: 20050321
  24. DIAZEPAM [Concomitant]
     Active Substance: DIAZEPAM
     Indication: Agitation
     Dosage: 4 DF, QD 2 DOSE IN MOR, 1 DOSE IN EVEN AND BEDTIME
     Route: 048
     Dates: start: 20090210
  25. DEPO-PROVERA [Concomitant]
     Active Substance: MEDROXYPROGESTERONE ACETATE
     Indication: Contraception
     Dosage: 1 DOSAGE FORM, Q3 MONTHS, 150 MG/3 M
     Route: 030
     Dates: start: 20050321

REACTIONS (4)
  - Localised oedema [Fatal]
  - Respiration abnormal [Fatal]
  - Respiratory arrest [Fatal]
  - Face oedema [Fatal]

NARRATIVE: CASE EVENT DATE: 20221102
